FAERS Safety Report 4453746-3 (Version None)
Quarter: 2004Q3

REPORT INFORMATION
  Report Type: 
  Country: None (occurrence: None)
  Receive Date: 20040920
  Receipt Date: 20040909
  Transmission Date: 20050211
  Serious: Yes (Hospitalization)
  Sender: FDA-Public Use
  Company Number: 200416856US

PATIENT
  Sex: Male
  Weight: 75.29 kg

DRUGS (11)
  1. TAXOTERE [Suspect]
     Indication: NON-SMALL CELL LUNG CANCER
     Route: 042
     Dates: start: 20040707, end: 20040714
  2. GEMCITABINE [Suspect]
     Indication: NON-SMALL CELL LUNG CANCER
     Route: 042
     Dates: start: 20040707, end: 20040714
  3. MOTRIN [Concomitant]
     Indication: BACK PAIN
     Dates: start: 20030801, end: 20040719
  4. SYNTHROID [Concomitant]
     Indication: HYPOTHYROIDISM
     Dates: start: 20030801
  5. CLONIDINE HCL [Concomitant]
     Indication: HYPERTENSION
     Dates: start: 20030801
  6. VERAPAMIL [Concomitant]
     Indication: HYPERTENSION
     Dates: start: 20030801, end: 20040719
  7. AVAPRO [Concomitant]
     Indication: HYPERTENSION
     Dates: start: 20030801, end: 20040719
  8. COMBIVENT [Concomitant]
     Indication: CHRONIC OBSTRUCTIVE AIRWAYS DISEASE
     Dosage: DOSE: 2 PUFFS
     Dates: start: 20030801, end: 20040719
  9. ADVAIR DISKUS 100/50 [Concomitant]
     Indication: CHRONIC OBSTRUCTIVE AIRWAYS DISEASE
     Dosage: DOSE: 1 PUFF
     Dates: start: 20030801, end: 20040719
  10. HUMIBID [Concomitant]
     Indication: SINUSITIS
     Dosage: DOSE: 1 TAB
     Dates: start: 20030801, end: 20040719
  11. VITAMIN CAP [Concomitant]
     Dates: start: 19960101, end: 20040719

REACTIONS (8)
  - ALANINE AMINOTRANSFERASE INCREASED [None]
  - ASPARTATE AMINOTRANSFERASE INCREASED [None]
  - BLOOD ALKALINE PHOSPHATASE INCREASED [None]
  - BLOOD BILIRUBIN INCREASED [None]
  - LOBAR PNEUMONIA [None]
  - PANCREATITIS ACUTE [None]
  - PLATELET COUNT DECREASED [None]
  - WHITE BLOOD CELL COUNT DECREASED [None]
